FAERS Safety Report 4363437-5 (Version None)
Quarter: 2004Q2

REPORT INFORMATION
  Report Type: 
  Country: None (occurrence: None)
  Receive Date: 20040524
  Receipt Date: 20040511
  Transmission Date: 20050107
  Serious: Yes (Other)
  Sender: FDA-Public Use
  Company Number: JP-GLAXOSMITHKLINE-B0332649A

PATIENT
  Age: 50 Year
  Sex: Female

DRUGS (4)
  1. PAXIL [Suspect]
     Indication: DEPRESSION
     Dosage: 10MG PER DAY
     Route: 048
     Dates: start: 20040428, end: 20040503
  2. LENDORM [Concomitant]
     Route: 048
  3. GASMOTIN [Concomitant]
     Route: 048
  4. SELBEX [Concomitant]
     Route: 048

REACTIONS (2)
  - HYPOAESTHESIA [None]
  - MYOCLONIC EPILEPSY [None]
